FAERS Safety Report 7298138-7 (Version None)
Quarter: 2011Q1

REPORT INFORMATION
  Report Type: 
  Country: None (occurrence: None)
  Receive Date: 20110214
  Receipt Date: 20110214
  Transmission Date: 20110831
  Serious: Yes (Hospitalization)
  Sender: FDA-Public Use
  Company Number: None

PATIENT
  Age: 48 Year
  Sex: Female

DRUGS (1)
  1. LAMOTRIGINE [Suspect]
     Indication: CONVULSION
     Dosage: TAKE 1 TABLET IN THE MORNING AND 2 TABLETS AT BEDTIME. BY MOUTH
     Dates: start: 20110203, end: 20110204

REACTIONS (1)
  - BEDRIDDEN [None]
